FAERS Safety Report 8220877-1 (Version None)
Quarter: 2012Q1

REPORT INFORMATION
  Report Type: 
  Country: None (occurrence: None)
  Receive Date: 20120320
  Receipt Date: 20120312
  Transmission Date: 20120608
  Serious: Yes (Other)
  Sender: FDA-Public Use
  Company Number: DE-UCBSA-038329

PATIENT
  Age: 61 Year
  Sex: Female
  Weight: 73 kg

DRUGS (5)
  1. PREDNISOLONE [Concomitant]
     Indication: RHEUMATOID ARTHRITIS
     Dates: start: 20020601
  2. CIMZIA [Suspect]
     Indication: RHEUMATOID ARTHRITIS
     Route: 058
     Dates: start: 20110307, end: 20110725
  3. MIRTAZAPINE [Concomitant]
     Indication: DEPRESSION
     Dates: start: 20101001
  4. PREDNISONE TAB [Concomitant]
     Indication: RHEUMATOID ARTHRITIS
     Dates: start: 20010101
  5. IBUPROFEN [Concomitant]
     Indication: RHEUMATOID ARTHRITIS
     Dosage: AS NEEDED
     Dates: start: 19930101

REACTIONS (3)
  - PRURITUS GENERALISED [None]
  - SKIN REACTION [None]
  - RASH GENERALISED [None]
